FAERS Safety Report 5087073-0 (Version None)
Quarter: 2006Q3

REPORT INFORMATION
  Report Type: 
  Country: None (occurrence: None)
  Receive Date: 20060821
  Receipt Date: 20060807
  Transmission Date: 20061208
  Serious: Yes (Death)
  Sender: FDA-Public Use
  Company Number: 2006097940

PATIENT
  Age: 60 Year
  Sex: Female

DRUGS (3)
  1. NEURONTIN [Suspect]
     Indication: RESTLESS LEGS SYNDROME
     Dosage: 600 MG (1 D), ORAL
     Route: 048
  2. LYRICA [Suspect]
     Indication: DRUG USE FOR UNKNOWN INDICATION
     Dosage: 150 MG (1 D), ORAL
     Route: 048
  3. MADOPARK (BENSERAZIDE HYDROCHLORIDE, LEVODOPA) [Suspect]
     Indication: RESTLESS LEGS SYNDROME
     Dosage: 600 MG (1 D), ORAL
     Route: 048

REACTIONS (4)
  - AGRANULOCYTOSIS [None]
  - CARDIAC ARREST [None]
  - MYOCARDIAL INFARCTION [None]
  - NEUTROPENIC SEPSIS [None]
